FAERS Safety Report 12802217 (Version 1)
Quarter: 2016Q4

REPORT INFORMATION
  Report Type: Spontaneous
  Country: US (occurrence: US)
  Receive Date: 20161003
  Receipt Date: 20161003
  Transmission Date: 20170207
  Serious: No
  Sender: FDA-Public Use
  Company Number: US-JAZZ-2016-US-012302

PATIENT
  Sex: Female

DRUGS (46)
  1. AMMONIUM LACTATE. [Concomitant]
     Active Substance: AMMONIUM LACTATE
  2. PERCOCET [Concomitant]
     Active Substance: ACETAMINOPHEN\OXYCODONE HYDROCHLORIDE
  3. ERYTHROMYCIN. [Concomitant]
     Active Substance: ERYTHROMYCIN
  4. PROVENTIL HFA [Concomitant]
     Active Substance: ALBUTEROL SULFATE
  5. XYREM [Suspect]
     Active Substance: SODIUM OXYBATE
     Dosage: 2.5 G, SECOND DOSE
     Route: 048
     Dates: start: 201409
  6. AMBIEN [Concomitant]
     Active Substance: ZOLPIDEM TARTRATE
  7. COLACE [Concomitant]
     Active Substance: DOCUSATE SODIUM
  8. LINZESS [Concomitant]
     Active Substance: LINACLOTIDE
  9. BACLOFEN. [Concomitant]
     Active Substance: BACLOFEN
  10. FLONASE [Concomitant]
     Active Substance: FLUTICASONE PROPIONATE
  11. KEPPRA [Concomitant]
     Active Substance: LEVETIRACETAM
  12. LORAZEPAM. [Concomitant]
     Active Substance: LORAZEPAM
  13. XYREM [Suspect]
     Active Substance: SODIUM OXYBATE
     Dosage: 2 G, BID
     Route: 048
     Dates: start: 201307, end: 2014
  14. VOLTAREN [Concomitant]
     Active Substance: DICLOFENAC SODIUM
  15. LIDODERM [Concomitant]
     Active Substance: LIDOCAINE
  16. NEURONTIN [Concomitant]
     Active Substance: GABAPENTIN
  17. MIRAPEX [Concomitant]
     Active Substance: PRAMIPEXOLE DIHYDROCHLORIDE
  18. XYREM [Suspect]
     Active Substance: SODIUM OXYBATE
     Indication: NARCOLEPSY
     Dosage: 1.5 G, BID
     Route: 048
     Dates: start: 201005, end: 2010
  19. CALCIUM ANTACID [Concomitant]
     Active Substance: CALCIUM CARBONATE
  20. RESTASIS [Concomitant]
     Active Substance: CYCLOSPORINE
  21. ZEGERID [Concomitant]
     Active Substance: OMEPRAZOLE\SODIUM BICARBONATE
  22. XYREM [Suspect]
     Active Substance: SODIUM OXYBATE
     Dosage: 4 G, FIRST DOSE
     Route: 048
     Dates: start: 201409
  23. ADDERALL [Concomitant]
     Active Substance: AMPHETAMINE ASPARTATE\AMPHETAMINE SULFATE\DEXTROAMPHETAMINE SACCHARATE\DEXTROAMPHETAMINE SULFATE
  24. VITAMIN D [Concomitant]
     Active Substance: CHOLECALCIFEROL
  25. AMITIZA [Concomitant]
     Active Substance: LUBIPROSTONE
  26. SALAGEN [Concomitant]
     Active Substance: PILOCARPINE HYDROCHLORIDE
  27. SINGULAIR [Concomitant]
     Active Substance: MONTELUKAST SODIUM
  28. SONATA [Concomitant]
     Active Substance: ZALEPLON
  29. WELLBUTRIN [Concomitant]
     Active Substance: BUPROPION HYDROCHLORIDE
  30. XYREM [Suspect]
     Active Substance: SODIUM OXYBATE
     Dosage: DOSE ADJUSTMENTS
     Route: 048
     Dates: start: 201110, end: 201307
  31. ALBUTEROL SULFATE. [Concomitant]
     Active Substance: ALBUTEROL SULFATE
  32. FEMCON FE [Concomitant]
     Active Substance: ETHINYL ESTRADIOL\NORETHINDRONE ACETATE
  33. NEXIUM [Concomitant]
     Active Substance: ESOMEPRAZOLE MAGNESIUM
  34. ZANAFLEX [Concomitant]
     Active Substance: TIZANIDINE HYDROCHLORIDE
  35. OXYCONTIN [Concomitant]
     Active Substance: OXYCODONE HYDROCHLORIDE
  36. DOXYCYCLINE HYCLATE. [Concomitant]
     Active Substance: DOXYCYCLINE HYCLATE
  37. VITAMIN B12 [Concomitant]
     Active Substance: CYANOCOBALAMIN
  38. TRIAMCINOLONE [Concomitant]
     Active Substance: TRIAMCINOLONE
  39. DIAZEPAM. [Concomitant]
     Active Substance: DIAZEPAM
  40. OMEPRAZOLE. [Concomitant]
     Active Substance: OMEPRAZOLE
  41. XYREM [Suspect]
     Active Substance: SODIUM OXYBATE
     Dosage: 3 G, BID
     Route: 048
     Dates: start: 201106, end: 201110
  42. MIDRIN [Concomitant]
     Active Substance: ACETAMINOPHEN\DICHLORALPHENAZONE\ISOMETHEPTENE
  43. MIDODRINE HCL [Concomitant]
     Active Substance: MIDODRINE HYDROCHLORIDE
  44. REQUIP [Concomitant]
     Active Substance: ROPINIROLE HYDROCHLORIDE
  45. VIIBRYD [Concomitant]
     Active Substance: VILAZODONE HYDROCHLORIDE
  46. CELEXA [Concomitant]
     Active Substance: CITALOPRAM HYDROBROMIDE

REACTIONS (1)
  - Viral infection [Unknown]
